FAERS Safety Report 13013649 (Version 1)
Quarter: 2016Q4

REPORT INFORMATION
  Report Type: Spontaneous
  Country: US (occurrence: US)
  Receive Date: 20161209
  Receipt Date: 20161209
  Transmission Date: 20170207
  Serious: Yes (Other)
  Sender: FDA-Public Use
  Company Number: PHHY2016US166780

PATIENT
  Age: 30 Year
  Sex: Male

DRUGS (3)
  1. CHLOROQUINE. [Suspect]
     Active Substance: CHLOROQUINE
     Indication: MALARIA
     Dosage: 2500 MG
     Route: 065
  2. PRIMAQUINE [Suspect]
     Active Substance: PRIMAQUINE PHOSPHATE
     Indication: MALARIA
     Dosage: 15 MG
     Route: 065
  3. MEFLOQUINE [Suspect]
     Active Substance: MEFLOQUINE
     Indication: MALARIA
     Dosage: 500 MG, TID
     Route: 065

REACTIONS (4)
  - Nausea [Recovering/Resolving]
  - Chorioretinopathy [Recovering/Resolving]
  - Dizziness [Recovering/Resolving]
  - Vomiting [Recovering/Resolving]
